FAERS Safety Report 5097459-6 (Version None)
Quarter: 2006Q3

REPORT INFORMATION
  Report Type: 
  Country: None (occurrence: None)
  Receive Date: 20060901
  Receipt Date: 20060823
  Transmission Date: 20061208
  Serious: Yes (Other)
  Sender: FDA-Public Use
  Company Number: 2006103462

PATIENT
  Age: 51 Year
  Sex: Female
  Weight: 122.4712 kg

DRUGS (12)
  1. SOLU-CORTEF [Suspect]
     Indication: MULTIPLE SCLEROSIS
     Dosage: INTRAVENOUS
     Route: 042
  2. CELEBREX [Suspect]
     Indication: SPINAL DISORDER
     Dates: start: 19990101
  3. BEXTRA [Suspect]
     Indication: ARTHROPATHY
     Dosage: 80 MG (40 MG, 2 IN 1 D)
     Dates: start: 20040101
  4. PIROXICAM [Suspect]
     Indication: ARTHROPATHY
     Dosage: 80 MG (40 MG, 2 IN 1 D)
     Dates: start: 20040101
  5. PIROXICAM [Suspect]
     Indication: BACK DISORDER
     Dosage: 80 MG (40 MG, 2 IN 1 D)
     Dates: start: 20040101
  6. ALL OTHER THERAPEUTIC PRODUCTS [Concomitant]
  7. LASIX [Concomitant]
  8. K-DUR 10 [Concomitant]
  9. VIVELLE [Concomitant]
  10. PROTONIX [Concomitant]
  11. VICODIN [Concomitant]
  12. DIURETICS [Concomitant]

REACTIONS (16)
  - ABASIA [None]
  - BACK DISORDER [None]
  - BODY HEIGHT DECREASED [None]
  - DRUG INEFFECTIVE [None]
  - GAIT DISTURBANCE [None]
  - INTERVERTEBRAL DISC PROTRUSION [None]
  - JOINT INJURY [None]
  - JOINT LOCK [None]
  - JOINT SWELLING [None]
  - LIGAMENT RUPTURE [None]
  - OEDEMA [None]
  - OEDEMA PERIPHERAL [None]
  - OSTEOARTHRITIS [None]
  - OSTEOPOROSIS [None]
  - ROAD TRAFFIC ACCIDENT [None]
  - WEIGHT INCREASED [None]
